FAERS Safety Report 4944171-7 (Version None)
Quarter: 2006Q1

REPORT INFORMATION
  Report Type: 
  Country: None (occurrence: None)
  Receive Date: 20060315
  Receipt Date: 20060306
  Transmission Date: 20060701
  Serious: Yes (Hospitalization)
  Sender: FDA-Public Use
  Company Number: JP-NOVOPROD-251416

PATIENT
  Age: 46 Year
  Sex: Female
  Weight: 55 kg

DRUGS (5)
  1. PENFILL R CHU [Suspect]
     Indication: KETOACIDOSIS
     Route: 058
     Dates: start: 20060201, end: 20060201
  2. PENFILL N CHU [Suspect]
     Indication: KETOACIDOSIS
     Route: 058
     Dates: start: 20060201, end: 20060201
  3. PENFILL 30R CHU [Suspect]
     Indication: KETOACIDOSIS
     Route: 058
     Dates: start: 20060201, end: 20060201
  4. NOVORAPID CHU [Suspect]
     Indication: KETOACIDOSIS
     Dates: start: 20060201, end: 20060201
  5. LANTUS [Suspect]
     Indication: KETOACIDOSIS
     Dates: start: 20060201, end: 20060201

REACTIONS (3)
  - ALANINE AMINOTRANSFERASE INCREASED [None]
  - ASPARTATE AMINOTRANSFERASE INCREASED [None]
  - HEPATIC FUNCTION ABNORMAL [None]
